FAERS Safety Report 5091547-6 (Version None)
Quarter: 2006Q3

REPORT INFORMATION
  Report Type: 
  Country: None (occurrence: None)
  Receive Date: 20060829
  Receipt Date: 20060820
  Transmission Date: 20061208
  Serious: Yes (Hospitalization)
  Sender: FDA-Public Use
  Company Number: US-ROCHE-460276

PATIENT
  Age: 34 Year
  Sex: Female

DRUGS (2)
  1. PEGASYS [Suspect]
     Dosage: ROUTE REPORTED AS INJ.
     Route: 050
     Dates: start: 20060622
  2. COPEGUS [Suspect]
     Dosage: ^MISSED TWO DAYS OF HER PILLS^.
     Route: 048
     Dates: start: 20060622

REACTIONS (8)
  - ARTHRALGIA [None]
  - ASTHENIA [None]
  - BEDRIDDEN [None]
  - DEHYDRATION [None]
  - DRUG DOSE OMISSION [None]
  - DRUG INEFFECTIVE [None]
  - NAUSEA [None]
  - VOMITING [None]
